FAERS Safety Report 4368878-8 (Version None)
Quarter: 2004Q2

REPORT INFORMATION
  Report Type: 
  Country: None (occurrence: None)
  Receive Date: 20040527
  Receipt Date: 20040511
  Transmission Date: 20050107
  Serious: Yes (Other)
  Sender: FDA-Public Use
  Company Number: US_0405102996

PATIENT
  Age: 61 Year
  Sex: Male
  Weight: 136 kg

DRUGS (1)
  1. HUMULIN N [Suspect]
     Dosage: 46 U DAY
     Dates: start: 20000101

REACTIONS (8)
  - BLOOD GLUCOSE DECREASED [None]
  - HIP SURGERY [None]
  - KNEE OPERATION [None]
  - MEDICATION ERROR [None]
  - PHARMACEUTICAL PRODUCT COMPLAINT [None]
  - PNEUMONIA [None]
  - SHOULDER OPERATION [None]
  - SURGERY [None]
